FAERS Safety Report 10865742 (Version 1)
Quarter: 2015Q1

REPORT INFORMATION
  Report Type: Spontaneous
  Country: US (occurrence: US)
  Receive Date: 20150224
  Receipt Date: 20150224
  Transmission Date: 20150721
  Serious: No
  Sender: FDA-Public Use
  Company Number: US-SHIRE-US201501365

PATIENT
  Age: 79 Year
  Sex: Male

DRUGS (1)
  1. LIALDA [Suspect]
     Active Substance: MESALAMINE
     Indication: GASTROINTESTINAL DISORDER
     Dosage: 1.2 G, UNKNOWN
     Route: 048

REACTIONS (8)
  - Diarrhoea [Unknown]
  - Dizziness [Unknown]
  - Hypersensitivity [Unknown]
  - Abdominal discomfort [Unknown]
  - Urticaria [Unknown]
  - Drug ineffective [Unknown]
  - Product use issue [Unknown]
  - Pruritus [Unknown]
